FAERS Safety Report 8499745-6 (Version None)
Quarter: 2012Q3

REPORT INFORMATION
  Report Type: 
  Country: None (occurrence: None)
  Receive Date: 20120710
  Receipt Date: 20120709
  Transmission Date: 20120928
  Serious: Yes (Other)
  Sender: FDA-Public Use
  Company Number: US-PFIZER INC-2012164310

PATIENT
  Sex: Female
  Weight: 58.957 kg

DRUGS (2)
  1. CHANTIX [Suspect]
     Indication: SMOKING CESSATION THERAPY
     Dosage: 0.5 MG, 1X/DAY
     Route: 048
     Dates: start: 20120708
  2. ENJUVIA [Concomitant]
     Dosage: UNK

REACTIONS (1)
  - SKIN EXFOLIATION [None]
